FAERS Safety Report 20047631 (Version 1)
Quarter: 2021Q4

REPORT INFORMATION
  Report Type: Spontaneous
  Country: US (occurrence: US)
  Receive Date: 20211109
  Receipt Date: 20211109
  Transmission Date: 20220303
  Serious: Yes (Other)
  Sender: FDA-Public Use
  Company Number: US-TEVA-2021-US-1971951

PATIENT
  Sex: Female

DRUGS (1)
  1. AIRDUO DIGIHALER [Suspect]
     Active Substance: FLUTICASONE PROPIONATE\SALMETEROL XINAFOATE
     Dosage: 113 MCG / 14 MCG
     Route: 055

REACTIONS (3)
  - Product contamination microbial [Unknown]
  - Poor quality product administered [Unknown]
  - Product residue present [Unknown]

NARRATIVE: CASE EVENT DATE: 20211014
